FAERS Safety Report 17845045 (Version 1)
Quarter: 2020Q2

REPORT INFORMATION
  Report Type: Spontaneous
  Country: SE (occurrence: SE)
  Receive Date: 20200601
  Receipt Date: 20200601
  Transmission Date: 20200714
  Serious: Yes (Other)
  Sender: FDA-Public Use
  Company Number: SE-ABBVIE-20P-150-3424121-00

PATIENT
  Age: 26 Year
  Sex: Female
  Weight: 75 kg

DRUGS (1)
  1. ENANTONE MONATS-DEPOT [Suspect]
     Active Substance: LEUPROLIDE ACETATE
     Indication: ENDOMETRIOSIS
     Dosage: 3.75 MILLIGRAM
     Route: 065
     Dates: start: 20190901, end: 20200511

REACTIONS (18)
  - Osteoporosis [Not Recovered/Not Resolved]
  - Breast tenderness [Not Recovered/Not Resolved]
  - Generalised oedema [Not Recovered/Not Resolved]
  - Fatigue [Not Recovered/Not Resolved]
  - Myalgia [Not Recovered/Not Resolved]
  - Acne [Not Recovered/Not Resolved]
  - Thirst [Not Recovered/Not Resolved]
  - Arthralgia [Not Recovered/Not Resolved]
  - Pyrexia [Not Recovered/Not Resolved]
  - Hyperhidrosis [Not Recovered/Not Resolved]
  - Dry skin [Not Recovered/Not Resolved]
  - Tinnitus [Not Recovered/Not Resolved]
  - Musculoskeletal stiffness [Not Recovered/Not Resolved]
  - Mood swings [Not Recovered/Not Resolved]
  - Migraine [Not Recovered/Not Resolved]
  - Urinary incontinence [Not Recovered/Not Resolved]
  - Weight increased [Not Recovered/Not Resolved]
  - Depression [Not Recovered/Not Resolved]

NARRATIVE: CASE EVENT DATE: 20191001
